FAERS Safety Report 19825536 (Version 2)
Quarter: 2021Q3

REPORT INFORMATION
  Report Type: Report from Study
  Country: DE (occurrence: DE)
  Receive Date: 20210914
  Receipt Date: 20210916
  Transmission Date: 20211014
  Serious: Yes (Other)
  Sender: FDA-Public Use
  Company Number: DE-SUN PHARMACEUTICAL INDUSTRIES LTD-2021R1-310926

PATIENT
  Sex: Female

DRUGS (4)
  1. MELATONIN [Suspect]
     Active Substance: MELATONIN
     Indication: PRODUCT USED FOR UNKNOWN INDICATION
     Dosage: UNK
     Route: 064
  2. VITAMIN A [Suspect]
     Active Substance: VITAMIN A
     Indication: PRODUCT USED FOR UNKNOWN INDICATION
     Dosage: UNK
     Route: 064
  3. AMITRIPTYLINE [Suspect]
     Active Substance: AMITRIPTYLINE
     Indication: PRODUCT USED FOR UNKNOWN INDICATION
     Dosage: UNK
     Route: 064
  4. NAPROXEN. [Suspect]
     Active Substance: NAPROXEN
     Indication: MIGRAINE
     Dosage: 500 MILLIGRAM, PRN
     Route: 064

REACTIONS (12)
  - Anomaly of external ear congenital [Unknown]
  - Premature baby [Unknown]
  - Patent ductus arteriosus [Unknown]
  - Choanal stenosis [Unknown]
  - Foetal exposure during pregnancy [Unknown]
  - Single umbilical artery [Unknown]
  - Atrial septal defect [Unknown]
  - Congenital choroid plexus cyst [Unknown]
  - Ventricular septal defect [Unknown]
  - Coarctation of the aorta [Unknown]
  - Tracheo-oesophageal fistula [Unknown]
  - Aorta hypoplasia [Unknown]
